FAERS Safety Report 7161526-3 (Version None)
Quarter: 2010Q4

REPORT INFORMATION
  Report Type: 
  Country: None (occurrence: None)
  Receive Date: 20101215
  Receipt Date: 20101210
  Transmission Date: 20110411
  Serious: Yes (Hospitalization, Other)
  Sender: FDA-Public Use
  Company Number: US-PFIZER INC-2010124836

PATIENT
  Sex: Male

DRUGS (10)
  1. CHANTIX [Suspect]
     Indication: SMOKING CESSATION THERAPY
     Dosage: 0.5MG/1MG, UNK
     Dates: start: 20070701, end: 20071001
  2. PRILOSEC [Concomitant]
     Indication: GASTROOESOPHAGEAL REFLUX DISEASE
     Dosage: UNK
     Dates: start: 20000101
  3. NEXIUM [Concomitant]
     Indication: GASTROOESOPHAGEAL REFLUX DISEASE
     Dosage: UNK
     Dates: start: 20040101, end: 20090101
  4. AMBIEN [Concomitant]
     Indication: SLEEP APNOEA SYNDROME
     Dosage: UNK
     Dates: start: 20020101
  5. FLEXERIL [Concomitant]
     Indication: PAIN
     Dosage: UNK
     Dates: start: 20040101, end: 20090101
  6. VICODIN [Concomitant]
     Indication: PAIN
     Dosage: UNK
     Dates: start: 20000101
  7. ADVAIR [Concomitant]
     Indication: BRONCHITIS CHRONIC
     Dosage: UNK
     Dates: start: 20040101
  8. NAPROXEN [Concomitant]
     Indication: PAIN
     Dosage: UNK
     Dates: start: 20040101, end: 20090101
  9. ZITHROMAX [Concomitant]
     Indication: INFECTION
     Dosage: UNK
     Dates: start: 20020101, end: 20100101
  10. ALBUTEROL [Concomitant]
     Indication: BRONCHITIS CHRONIC
     Dosage: UNK
     Dates: start: 20020101, end: 20100101

REACTIONS (6)
  - AGGRESSION [None]
  - AGITATION [None]
  - ANXIETY [None]
  - DEPRESSION [None]
  - INSOMNIA [None]
  - SUICIDAL IDEATION [None]
